FAERS Safety Report 6432215-5 (Version None)
Quarter: 2009Q4

REPORT INFORMATION
  Report Type: 
  Country: None (occurrence: None)
  Receive Date: 20091109
  Receipt Date: 20091028
  Transmission Date: 20100525
  Serious: Yes (Other)
  Sender: FDA-Public Use
  Company Number: US-BAYER-200937710NA

PATIENT
  Age: 17 Year
  Sex: Female
  Weight: 59 kg

DRUGS (1)
  1. YAZ [Suspect]
     Indication: MENSTRUATION IRREGULAR
     Dosage: TOTAL DAILY DOSE: 1 DF
     Route: 048
     Dates: start: 20080101, end: 20091016

REACTIONS (2)
  - ABDOMINAL PAIN UPPER [None]
  - GALLBLADDER DISORDER [None]
